FAERS Safety Report 7280883-0 (Version None)
Quarter: 2011Q1

REPORT INFORMATION
  Report Type: 
  Country: None (occurrence: None)
  Receive Date: 20110208
  Receipt Date: 20110128
  Transmission Date: 20110831
  Serious: Yes (Hospitalization)
  Sender: FDA-Public Use
  Company Number: US-JNJFOC-20110107804

PATIENT
  Sex: Male

DRUGS (3)
  1. ECULIZUMAB [Suspect]
     Indication: PAROXYSMAL NOCTURNAL HAEMOGLOBINURIA
  2. TYLENOL-500 [Suspect]
     Indication: HEADACHE
     Route: 048
  3. TYLENOL-500 [Suspect]
     Route: 048

REACTIONS (3)
  - HEPATIC ENZYME INCREASED [None]
  - INCORRECT DOSE ADMINISTERED [None]
  - ABDOMINAL PAIN [None]
